FAERS Safety Report 12387841 (Version 1)
Quarter: 2016Q2

REPORT INFORMATION
  Report Type: Spontaneous
  Country: ES (occurrence: ES)
  Receive Date: 20160520
  Receipt Date: 20160520
  Transmission Date: 20160815
  Serious: Yes (Life-Threatening, Hospitalization)
  Sender: FDA-Public Use
  Company Number: ES-009507513-1605ESP008364

PATIENT
  Age: 70 Year
  Sex: Male

DRUGS (3)
  1. FUROSEMIDE. [Suspect]
     Active Substance: FUROSEMIDE
     Dosage: DAILY DOSE: 40 MG
     Route: 048
     Dates: start: 201103
  2. AMLODIPINE BESYLATE (+) HYDROCHLOROTHIAZIDE (+) OLMESARTAN MEDOXOMIL [Interacting]
     Active Substance: AMLODIPINE BESYLATE\HYDROCHLOROTHIAZIDE\OLMESARTAN MEDOXOMIL
     Indication: HYPERTENSION
     Dosage: DAILY DOSE: 1 DF DOSAGE FORM
     Route: 048
     Dates: start: 201012, end: 20160412
  3. VELMETIA [Interacting]
     Active Substance: METFORMIN\SITAGLIPTIN
     Indication: DIABETES MELLITUS
     Dosage: DAILY DOSE: 1 DF DOSAGE FORM
     Route: 048
     Dates: start: 201210, end: 20160412

REACTIONS (3)
  - Nodal rhythm [None]
  - Lactic acidosis [Recovered/Resolved]
  - Atrioventricular block complete [None]

NARRATIVE: CASE EVENT DATE: 20160412
